FAERS Safety Report 8417900-8 (Version None)
Quarter: 2012Q2

REPORT INFORMATION
  Report Type: 
  Country: None (occurrence: None)
  Receive Date: 20120607
  Receipt Date: 20120531
  Transmission Date: 20120825
  Serious: No
  Sender: FDA-Public Use
  Company Number: US-PFIZER INC-2012132121

PATIENT
  Age: 39 Year
  Sex: Male

DRUGS (3)
  1. CYMBALTA [Suspect]
     Indication: FIBROMYALGIA
     Dosage: UNK
  2. LYRICA [Suspect]
     Indication: FIBROMYALGIA
     Dosage: UNK
  3. SAVELLA [Suspect]
     Indication: FIBROMYALGIA
     Dosage: UNK

REACTIONS (8)
  - FATIGUE [None]
  - PAIN [None]
  - FEELING ABNORMAL [None]
  - ARACHNOID CYST [None]
  - ACTIVITIES OF DAILY LIVING IMPAIRED [None]
  - DRUG INEFFECTIVE [None]
  - INSOMNIA [None]
  - ASTHENIA [None]
